FAERS Safety Report 8161342-X (Version None)
Quarter: 2012Q1

REPORT INFORMATION
  Report Type: 
  Country: None (occurrence: None)
  Receive Date: 20120224
  Receipt Date: 20120213
  Transmission Date: 20120608
  Serious: Yes (Other)
  Sender: FDA-Public Use
  Company Number: DE-JNJFOC-20120208221

PATIENT
  Sex: Female
  Weight: 76 kg

DRUGS (8)
  1. AMLODIPINE [Concomitant]
  2. CELEBREX [Concomitant]
  3. XARELTO [Suspect]
     Indication: THROMBOSIS PROPHYLAXIS
     Route: 048
  4. LEVOTHYROXINE SODIUM [Concomitant]
  5. PANTOPRAZOLE [Concomitant]
  6. XARELTO [Suspect]
     Indication: HIP ARTHROPLASTY
     Route: 048
  7. RAMIPRIL [Concomitant]
  8. HEPARIN [Concomitant]

REACTIONS (1)
  - THROMBOCYTOSIS [None]
